FAERS Safety Report 6053207-4 (Version None)
Quarter: 2009Q1

REPORT INFORMATION
  Report Type: 
  Country: None (occurrence: None)
  Receive Date: 20090127
  Receipt Date: 20090115
  Transmission Date: 20090719
  Serious: No
  Sender: FDA-Public Use
  Company Number: CA-ASTRAZENECA-2009UW01708

PATIENT
  Age: 50 Year
  Sex: Male
  Weight: 77.1 kg

DRUGS (1)
  1. CRESTOR [Suspect]
     Route: 048

REACTIONS (3)
  - CHEST DISCOMFORT [None]
  - DIZZINESS [None]
  - FREQUENT BOWEL MOVEMENTS [None]
